FAERS Safety Report 19310658 (Version 2)
Quarter: 2021Q2

REPORT INFORMATION
  Report Type: Spontaneous
  Country: DE (occurrence: DE)
  Receive Date: 20210526
  Receipt Date: 20210616
  Transmission Date: 20210717
  Serious: Yes (Hospitalization, Other)
  Sender: FDA-Public Use
  Company Number: NVSC2021DE111053

PATIENT
  Age: 64 Year
  Sex: Male
  Weight: 47.8 kg

DRUGS (3)
  1. VARGATEF [Suspect]
     Active Substance: NINTEDANIB
     Indication: LUNG ADENOCARCINOMA
     Dosage: 200 MG
     Route: 065
     Dates: start: 20200704
  2. DOCETAXEL. [Suspect]
     Active Substance: DOCETAXEL
     Indication: LUNG ADENOCARCINOMA
     Dosage: 75 MG/M2, QD
     Route: 065
     Dates: start: 20200703
  3. VARGATEF [Suspect]
     Active Substance: NINTEDANIB
     Dosage: 200 MG, QD
     Route: 065
     Dates: start: 20200725

REACTIONS (3)
  - Stomatitis [Not Recovered/Not Resolved]
  - Pneumothorax [Recovered/Resolved]
  - Diarrhoea [Recovered/Resolved]

NARRATIVE: CASE EVENT DATE: 20200703
